FAERS Safety Report 16616354 (Version 1)
Quarter: 2019Q3

REPORT INFORMATION
  Report Type: Spontaneous
  Country: DE (occurrence: DE)
  Receive Date: 20190723
  Receipt Date: 20190723
  Transmission Date: 20191004
  Serious: Yes (Hospitalization)
  Sender: FDA-Public Use
  Company Number: DE-ASTELLAS-2019US029236

PATIENT
  Age: 32 Year
  Sex: Female
  Weight: 60 kg

DRUGS (5)
  1. TACROLIMUS. [Suspect]
     Active Substance: TACROLIMUS
     Indication: COLITIS ULCERATIVE
     Dosage: UNK UNK, UNKNOWN FREQ.
     Route: 065
     Dates: start: 201501, end: 201901
  2. XELJANZ [Suspect]
     Active Substance: TOFACITINIB CITRATE
     Indication: COLITIS ULCERATIVE
     Route: 048
     Dates: start: 201901, end: 20190507
  3. HUMIRA [Suspect]
     Active Substance: ADALIMUMAB
     Indication: PRODUCT USED FOR UNKNOWN INDICATION
     Dosage: UNK UNK, UNKNOWN FREQ.
     Route: 058
     Dates: start: 2014, end: 2014
  4. VEDOLIZUMAB [Suspect]
     Active Substance: VEDOLIZUMAB
     Indication: COLITIS ULCERATIVE
     Dosage: UNK UNK, UNKNOWN FREQ.
     Route: 065
     Dates: start: 201501, end: 201901
  5. XELJANZ [Suspect]
     Active Substance: TOFACITINIB CITRATE
     Indication: PSORIATIC ARTHROPATHY
     Route: 065
     Dates: start: 201901

REACTIONS (7)
  - Rash papular [Unknown]
  - Granulomatous rosacea [Unknown]
  - Rash [Unknown]
  - Haematocrit abnormal [Unknown]
  - Drug ineffective for unapproved indication [Unknown]
  - Eosinophil percentage decreased [Unknown]
  - Haemoglobin decreased [Unknown]

NARRATIVE: CASE EVENT DATE: 201902
